FAERS Safety Report 18112765 (Version 1)
Quarter: 2020Q3

REPORT INFORMATION
  Report Type: Spontaneous
  Country: US (occurrence: US)
  Receive Date: 20200804
  Receipt Date: 20200804
  Transmission Date: 20201103
  Serious: No
  Sender: FDA-Public Use
  Company Number: None

PATIENT
  Age: 63 Year
  Sex: Female
  Weight: 51.75 kg

DRUGS (1)
  1. EVENITY [Suspect]
     Active Substance: ROMOSOZUMAB-AQQG
     Indication: OSTEOPOROSIS
     Dosage: ?          OTHER FREQUENCY:MONTHLY;?
     Route: 058
     Dates: start: 20200113, end: 20200804

REACTIONS (5)
  - Decreased appetite [None]
  - Loss of personal independence in daily activities [None]
  - Fatigue [None]
  - Somnolence [None]
  - Pain [None]

NARRATIVE: CASE EVENT DATE: 20200702
